FAERS Safety Report 7952848-4 (Version None)
Quarter: 2011Q4

REPORT INFORMATION
  Report Type: 
  Country: None (occurrence: None)
  Receive Date: 20111201
  Receipt Date: 20111124
  Transmission Date: 20120403
  Serious: Yes (Hospitalization)
  Sender: FDA-Public Use
  Company Number: DE-TEVA-310610GER

PATIENT
  Age: 69 Year
  Sex: Female

DRUGS (9)
  1. AMLODIPINE [Suspect]
     Route: 048
  2. LITHIUM CARBONATE [Suspect]
     Route: 048
     Dates: end: 20110401
  3. DIOVAN [Concomitant]
     Route: 048
  4. HYDROCHLOROTHIAZIDE [Interacting]
     Route: 048
     Dates: end: 20110328
  5. METOPROLOL SUCCINATE [Concomitant]
     Route: 048
  6. LEVOTHYROXINE SODIUM [Concomitant]
     Route: 048
  7. IODID [Concomitant]
     Route: 048
  8. ASPIRIN [Interacting]
     Route: 048
  9. PANTOPRAZOLE SODIUM [Concomitant]
     Route: 048

REACTIONS (5)
  - RENAL IMPAIRMENT [None]
  - POISONING [None]
  - INFECTION [None]
  - DRUG INTERACTION [None]
  - POTENTIATING DRUG INTERACTION [None]
